FAERS Safety Report 18023565 (Version 1)
Quarter: 2020Q3

REPORT INFORMATION
  Report Type: Report from Study
  Country: US (occurrence: US)
  Receive Date: 20200714
  Receipt Date: 20200714
  Transmission Date: 20201103
  Serious: Yes (Hospitalization)
  Sender: FDA-Public Use
  Company Number: US-EISAI MEDICAL RESEARCH-EC-2020-077010

PATIENT
  Age: 68 Year
  Sex: Female
  Weight: 59 kg

DRUGS (5)
  1. MELATONIN [Concomitant]
     Active Substance: MELATONIN
  2. PRILOSEC [Concomitant]
     Active Substance: OMEPRAZOLE MAGNESIUM
  3. LENVIMA [Suspect]
     Active Substance: LENVATINIB
     Indication: ENDOMETRIAL CANCER
     Route: 048
     Dates: start: 20200415, end: 2020
  4. FISH OIL?OMEGA?3?VITAMIN D [Concomitant]
  5. OLANZAPINE. [Concomitant]
     Active Substance: OLANZAPINE

REACTIONS (1)
  - Intestinal perforation [Unknown]

NARRATIVE: CASE EVENT DATE: 2020
